FAERS Safety Report 7295819-6 (Version None)
Quarter: 2011Q1

REPORT INFORMATION
  Report Type: 
  Country: None (occurrence: None)
  Receive Date: 20110216
  Receipt Date: 20110207
  Transmission Date: 20110831
  Serious: No
  Sender: FDA-Public Use
  Company Number: US-ABBOTT-11P-163-0704426-00

PATIENT
  Sex: Male
  Weight: 74.91 kg

DRUGS (1)
  1. SIMCOR [Suspect]
     Indication: BLOOD CHOLESTEROL INCREASED
     Dosage: 500/20MG 2 IN 1 D
     Dates: start: 20091201

REACTIONS (6)
  - VITAMIN D DECREASED [None]
  - HOT FLUSH [None]
  - PAIN IN EXTREMITY [None]
  - MUSCULOSKELETAL PAIN [None]
  - GENERALISED ERYTHEMA [None]
  - SLEEP DISORDER [None]
